FAERS Safety Report 14257813 (Version 1)
Quarter: 2017Q4

REPORT INFORMATION
  Report Type: Report from Study
  Country: CZ (occurrence: CZ)
  Receive Date: 20171207
  Receipt Date: 20171207
  Transmission Date: 20180321
  Serious: Yes (Other)
  Sender: FDA-Public Use
  Company Number: CZ-ROCHE-2034870

PATIENT

DRUGS (4)
  1. RITUXIMAB. [Suspect]
     Active Substance: RITUXIMAB
     Indication: ENDOCRINE OPHTHALMOPATHY
     Route: 042
  2. PARACETAMOL [Concomitant]
     Active Substance: ACETAMINOPHEN
     Indication: PROPHYLAXIS
     Dosage: BEFORE AND AFTER INFUSION
     Route: 065
  3. METHYLPREDNISOLONE. [Concomitant]
     Active Substance: METHYLPREDNISOLONE
     Indication: PROPHYLAXIS
     Dosage: BEFORE INFUSION
     Route: 065
  4. BISULEPIN [Concomitant]
     Active Substance: BISULEPIN
     Indication: PROPHYLAXIS
     Dosage: BEFORE AND AFTER INFUSION
     Route: 065

REACTIONS (1)
  - Endocrine ophthalmopathy [Recovered/Resolved]
